FAERS Safety Report 17301945 (Version 2)
Quarter: 2021Q1

REPORT INFORMATION
  Report Type: Spontaneous
  Country: US (occurrence: US)
  Receive Date: 20200122
  Receipt Date: 20210125
  Transmission Date: 20210419
  Serious: No
  Sender: FDA-Public Use
  Company Number: US-ABBVIE-19K-163-3168113-00

PATIENT
  Sex: Female
  Weight: 71.73 kg

DRUGS (1)
  1. ORILISSA [Suspect]
     Active Substance: ELAGOLIX SODIUM
     Indication: ENDOMETRIOSIS
     Route: 048
     Dates: start: 20191014, end: 20191119

REACTIONS (2)
  - Maternal exposure during pregnancy [Unknown]
  - Live birth [Unknown]
